FAERS Safety Report 23408294 (Version 1)
Quarter: 2024Q1

REPORT INFORMATION
  Report Type: Spontaneous
  Country: US (occurrence: US)
  Receive Date: 20240117
  Receipt Date: 20240117
  Transmission Date: 20240410
  Serious: Yes (Other)
  Sender: FDA-Public Use
  Company Number: US-EPICPHARMA-US-2024EPCLIT00017

PATIENT
  Sex: Male

DRUGS (1)
  1. GENTAMICIN SULFATE [Suspect]
     Active Substance: GENTAMICIN SULFATE
     Indication: Product used for unknown indication
     Route: 065

REACTIONS (4)
  - Nephropathy toxic [Unknown]
  - End stage renal disease [Unknown]
  - Cardiac failure congestive [Unknown]
  - Arrhythmia [Unknown]
